FAERS Safety Report 23486086 (Version 2)
Quarter: 2024Q1

REPORT INFORMATION
  Report Type: Spontaneous
  Country: US (occurrence: US)
  Receive Date: 20240206
  Receipt Date: 20240208
  Transmission Date: 20240410
  Serious: Yes (Other)
  Sender: FDA-Public Use
  Company Number: US-MACLEODS PHARMACEUTICALS US LTD-MAC2024045679

PATIENT

DRUGS (1)
  1. SEVELAMER [Suspect]
     Active Substance: SEVELAMER
     Indication: Product used for unknown indication
     Dosage: 2400 MILLIGRAM, QD
     Route: 065

REACTIONS (3)
  - Diverticulitis [Unknown]
  - Gastrointestinal haemorrhage [Recovered/Resolved]
  - Large intestine perforation [Unknown]
